FAERS Safety Report 25187929 (Version 2)
Quarter: 2025Q3

REPORT INFORMATION
  Report Type: Spontaneous
  Country: CN (occurrence: CN)
  Receive Date: 20250411
  Receipt Date: 20250909
  Transmission Date: 20251021
  Serious: Yes (Life-Threatening, Hospitalization, Other)
  Sender: ACCORD
  Company Number: CN-Accord-478113

PATIENT
  Age: 33 Year
  Sex: Female

DRUGS (1)
  1. LEUPROLIDE [Suspect]
     Active Substance: LEUPROLIDE
     Indication: Adenomyosis
     Dosage: INJECTION OF LEUPROLIDE ON THE THIRD DAY OF MENSTRUATION
     Route: 058

REACTIONS (1)
  - Ovarian hyperstimulation syndrome [Recovered/Resolved]
